FAERS Safety Report 7107550-8 (Version None)
Quarter: 2010Q4

REPORT INFORMATION
  Report Type: 
  Country: None (occurrence: None)
  Receive Date: 20101117
  Receipt Date: 20101105
  Transmission Date: 20110411
  Serious: Yes (Other)
  Sender: FDA-Public Use
  Company Number: US-PFIZER INC-2010108375

PATIENT
  Sex: Male
  Weight: 93 kg

DRUGS (7)
  1. TIKOSYN [Suspect]
     Indication: ATRIAL FIBRILLATION
     Dosage: 250 UG, 2X/DAY
     Route: 048
     Dates: start: 20050101
  2. TIKOSYN [Suspect]
     Dosage: 250 UG, 1X/DAY
     Route: 048
  3. CELEXA [Concomitant]
     Indication: ANXIETY
     Dosage: UNK
  4. CELEXA [Concomitant]
     Indication: DEPRESSION
  5. KLOR-CON [Concomitant]
     Dosage: UNK
  6. ACETYLSALICYLIC ACID [Concomitant]
     Dosage: 325 MG, 1X/DAY
  7. MULTI-VITAMINS [Concomitant]
     Dosage: UNK

REACTIONS (3)
  - DYSPNOEA EXERTIONAL [None]
  - HEART RATE DECREASED [None]
  - HYPERTENSION [None]
